FAERS Safety Report 19957367 (Version 2)
Quarter: 2021Q4

REPORT INFORMATION
  Report Type: Report from Study
  Country: IN (occurrence: IN)
  Receive Date: 20211014
  Receipt Date: 20211025
  Transmission Date: 20220303
  Serious: Yes (Hospitalization)
  Sender: FDA-Public Use
  Company Number: IN-ELI_LILLY_AND_COMPANY-IN202110002763

PATIENT
  Age: 66 Year
  Sex: Female
  Weight: 46.5 kg

DRUGS (3)
  1. ABEMACICLIB [Suspect]
     Active Substance: ABEMACICLIB
     Indication: Breast cancer metastatic
     Dosage: 150 MG, BID (1 TO 28 DAYS CYCLE)
     Route: 048
     Dates: start: 20210902, end: 20211006
  2. LETROZOLE [Suspect]
     Active Substance: LETROZOLE
     Indication: Breast cancer metastatic
     Dosage: 2.5 MG, DAILY
     Route: 048
     Dates: start: 20210902
  3. INSUGEN [Concomitant]
     Indication: Type 2 diabetes mellitus
     Dosage: UNK, UNKNOWN (14-4-4 UNITS)
     Route: 065

REACTIONS (1)
  - Gastroenteritis [Recovered/Resolved]

NARRATIVE: CASE EVENT DATE: 20211006
